FAERS Safety Report 6179424-0 (Version None)
Quarter: 2009Q2

REPORT INFORMATION
  Report Type: 
  Country: None (occurrence: None)
  Receive Date: 20090505
  Receipt Date: 20090427
  Transmission Date: 20091009
  Serious: Yes (Death)
  Sender: FDA-Public Use
  Company Number: A0782382A

PATIENT
  Sex: Male

DRUGS (2)
  1. SERETIDE [Suspect]
     Dosage: 1PUFF TWICE PER DAY
     Route: 055
     Dates: start: 20050101, end: 20090219
  2. FENTANYL [Concomitant]
     Dosage: 1TAB PER DAY
     Route: 048
     Dates: start: 20050101, end: 20090219

REACTIONS (1)
  - ROAD TRAFFIC ACCIDENT [None]
